FAERS Safety Report 4319700-7 (Version None)
Quarter: 2004Q1

REPORT INFORMATION
  Report Type: 
  Country: None (occurrence: None)
  Receive Date: 20040316
  Receipt Date: 20040303
  Transmission Date: 20041129
  Serious: Yes (Hospitalization)
  Sender: FDA-Public Use
  Company Number: 04H-163-0252642-00

PATIENT
  Age: 47 Year
  Sex: Female
  Weight: 46 kg

DRUGS (2)
  1. VANCOMYCIN INJECTION (VANCOMYCIN HYDROCHLORIDE) (VANCOMYCIN HYDROCHLOR [Suspect]
     Indication: SUBACUTE ENDOCARDITIS
     Dosage: 1 GM, ONCE, INTRAVENOUS
     Route: 042
     Dates: start: 20040128, end: 20040128
  2. EPOETIN ALFA [Concomitant]

REACTIONS (4)
  - DIALYSIS [None]
  - DYSPNOEA [None]
  - HYPOTENSION [None]
  - PRURITUS [None]
